FAERS Safety Report 10205857 (Version 2)
Quarter: 2014Q3

REPORT INFORMATION
  Report Type: Report from Study
  Country: US (occurrence: US)
  Receive Date: 20140530
  Receipt Date: 20140812
  Transmission Date: 20150326
  Serious: Yes (Hospitalization)
  Sender: FDA-Public Use
  Company Number: US-BIOGENIDEC-2014BI051185

PATIENT
  Age: 53 Year
  Sex: Female

DRUGS (1)
  1. TYSABRI [Suspect]
     Active Substance: NATALIZUMAB
     Indication: MULTIPLE SCLEROSIS
     Route: 042
     Dates: start: 20100210, end: 20140414

REACTIONS (6)
  - Appendicitis [Recovered/Resolved]
  - Urinary tract infection [Recovered/Resolved]
  - Bronchitis [Unknown]
  - Immune system disorder [Not Recovered/Not Resolved]
  - Pyrexia [Unknown]
  - Drug dose omission [Recovered/Resolved]

NARRATIVE: CASE EVENT DATE: 2012
